FAERS Safety Report 6009210-3 (Version None)
Quarter: 2008Q4

REPORT INFORMATION
  Report Type: 
  Country: None (occurrence: None)
  Receive Date: 20081217
  Receipt Date: 20081003
  Transmission Date: 20090506
  Serious: Yes (Other)
  Sender: FDA-Public Use
  Company Number: US-AMGEN-QUU307380

PATIENT
  Sex: Female
  Weight: 72.6 kg

DRUGS (1)
  1. ENBREL [Suspect]
     Indication: PSORIASIS
     Route: 058
     Dates: start: 20040315, end: 20080530

REACTIONS (10)
  - ANXIETY [None]
  - ARRHYTHMIA [None]
  - ATELECTASIS [None]
  - DIFFUSE LARGE B-CELL LYMPHOMA [None]
  - FLUID RETENTION [None]
  - HYPERTENSION [None]
  - INSOMNIA [None]
  - NEUROPATHY PERIPHERAL [None]
  - PERICARDIAL EFFUSION [None]
  - PLEURAL EFFUSION [None]
